FAERS Safety Report 6116731-1 (Version None)
Quarter: 2009Q1

REPORT INFORMATION
  Report Type: 
  Country: None (occurrence: None)
  Receive Date: 20090314
  Receipt Date: 20081226
  Transmission Date: 20090719
  Serious: No
  Sender: FDA-Public Use
  Company Number: US-ABBOTT-08P-163-0494847-00

PATIENT
  Sex: Female
  Weight: 59.02 kg

DRUGS (6)
  1. HUMIRA [Suspect]
     Indication: RHEUMATOID ARTHRITIS
     Route: 058
     Dates: start: 20070101, end: 20080401
  2. HUMIRA [Suspect]
     Indication: RHEUMATOID ARTHRITIS
     Route: 058
     Dates: start: 20081212
  3. NAPROXEN [Suspect]
     Indication: RHEUMATOID ARTHRITIS
     Dosage: DAILY
     Dates: end: 20080401
  4. ARAVA [Concomitant]
     Indication: RHEUMATOID ARTHRITIS
     Dosage: UNKNOWN
  5. ASPIRIN [Concomitant]
     Indication: RHEUMATOID ARTHRITIS
     Route: 048
  6. GLUCOSAMINE HYDROCHLORIDE [Concomitant]
     Indication: RHEUMATOID ARTHRITIS
     Dosage: UNKNOWN

REACTIONS (4)
  - BLOOD PRESSURE INCREASED [None]
  - DRUG DELIVERY SYSTEM MALFUNCTION [None]
  - INCORRECT DOSE ADMINISTERED [None]
  - INJECTION SITE HAEMATOMA [None]
